FAERS Safety Report 12094908 (Version 1)
Quarter: 2016Q1

REPORT INFORMATION
  Report Type: Spontaneous
  Country: MX (occurrence: MX)
  Receive Date: 20160219
  Receipt Date: 20160219
  Transmission Date: 20160526
  Serious: No
  Sender: FDA-Public Use
  Company Number: MX-PERNIX THERAPEUTICS-2015PT000151

PATIENT

DRUGS (4)
  1. CEDAX [Suspect]
     Active Substance: CEFTIBUTEN DIHYDRATE
     Indication: URINARY TRACT INFECTION
     Dosage: 400 MG, QD
     Route: 048
     Dates: start: 20150519, end: 20150525
  2. ALZOR HCT [Concomitant]
     Dosage: UNK
     Dates: start: 2013
  3. FOSAMAX PLUS D [Concomitant]
     Active Substance: ALENDRONATE SODIUM\CHOLECALCIFEROL
     Dosage: UNK
     Dates: start: 2005
  4. ARCOXIA [Concomitant]
     Active Substance: ETORICOXIB
     Dosage: UNK
     Dates: start: 2010

REACTIONS (1)
  - Diarrhoea [Recovering/Resolving]

NARRATIVE: CASE EVENT DATE: 20150521
